FAERS Safety Report 4708283-5 (Version None)
Quarter: 2005Q3

REPORT INFORMATION
  Report Type: 
  Country: None (occurrence: None)
  Receive Date: 20050707
  Receipt Date: 20050209
  Transmission Date: 20060218
  Serious: Yes (Hospitalization, Disabling)
  Sender: FDA-Public Use
  Company Number: US-MERCK-0502USA01341

PATIENT
  Age: 41 Year
  Sex: Male
  Weight: 97 kg

DRUGS (9)
  1. VIOXX [Suspect]
     Indication: RHEUMATOID ARTHRITIS
     Route: 048
     Dates: start: 20010201
  2. VIOXX [Suspect]
     Route: 048
     Dates: start: 20010201, end: 20021001
  3. VIOXX [Suspect]
     Indication: ARTHRALGIA
     Route: 048
     Dates: start: 20010201
  4. VIOXX [Suspect]
     Route: 048
     Dates: start: 20010201, end: 20021001
  5. ZIAC [Concomitant]
     Route: 065
  6. BISOPROLOL [Concomitant]
     Route: 065
  7. NAPROXEN [Concomitant]
     Route: 065
  8. VERAPAMIL [Concomitant]
     Route: 065
  9. TIAZAC [Concomitant]
     Route: 065

REACTIONS (20)
  - ATHEROSCLEROSIS [None]
  - BLOOD CHOLESTEROL INCREASED [None]
  - CARDIAC FAILURE CONGESTIVE [None]
  - CARDIAC MURMUR [None]
  - CHEST PAIN [None]
  - CHRONIC FATIGUE SYNDROME [None]
  - COLONIC POLYP [None]
  - CORONARY ARTERY DISEASE [None]
  - DEPRESSION [None]
  - DYSPEPSIA [None]
  - DYSPNOEA [None]
  - EAR CANAL INJURY [None]
  - EXTRASYSTOLES [None]
  - HAEMORRHOIDS [None]
  - HYPERTENSION [None]
  - JOINT SWELLING [None]
  - LABYRINTHITIS [None]
  - MYOCARDIAL INFARCTION [None]
  - POST-TRAUMATIC STRESS DISORDER [None]
  - VERTIGO [None]
